FAERS Safety Report 12531746 (Version 1)
Quarter: 2016Q3

REPORT INFORMATION
  Report Type: Report from Study
  Country: US (occurrence: US)
  Receive Date: 20160706
  Receipt Date: 20160706
  Transmission Date: 20161109
  Serious: Yes (Hospitalization)
  Sender: FDA-Public Use
  Company Number: US-PFIZER INC-2015364620

PATIENT
  Age: 84 Year
  Sex: Male
  Weight: 68 kg

DRUGS (13)
  1. BLINDED TAFAMIDIS MEGLUMINE [Suspect]
     Active Substance: TAFAMIDIS MEGLUMINE
     Indication: CARDIAC AMYLOIDOSIS
     Dosage: BLIND THERAPY
     Route: 048
     Dates: start: 20150622
  2. OMEPRAZOLE. [Concomitant]
     Active Substance: OMEPRAZOLE
  3. BLINDED TAFAMIDIS MEGLUMINE [Suspect]
     Active Substance: TAFAMIDIS MEGLUMINE
     Indication: CARDIAC AMYLOIDOSIS
     Dosage: BLIND THERAPY
     Route: 048
     Dates: start: 20150622
  4. SPIRONOLACTONE. [Suspect]
     Active Substance: SPIRONOLACTONE
     Dosage: UNK
  5. BUMETANIDE. [Suspect]
     Active Substance: BUMETANIDE
  6. CALCIUM CARBONATE. [Concomitant]
     Active Substance: CALCIUM CARBONATE
  7. LISINOPRIL. [Concomitant]
     Active Substance: LISINOPRIL
  8. BLINDED PLACEBO [Suspect]
     Active Substance: INVESTIGATIONAL PRODUCT
     Indication: CARDIAC AMYLOIDOSIS
     Dosage: BLIND THERAPY
     Route: 048
     Dates: start: 20150622
  9. CARVEDILOL. [Concomitant]
     Active Substance: CARVEDILOL
  10. CLOPIDOGREL BISULFATE. [Concomitant]
     Active Substance: CLOPIDOGREL BISULFATE
  11. BLINDED PLACEBO [Suspect]
     Active Substance: INVESTIGATIONAL PRODUCT
     Indication: CARDIAC AMYLOIDOSIS
     Dosage: BLIND THERAPY
     Route: 048
     Dates: start: 20150622
  12. PRAVASTATIN. [Concomitant]
     Active Substance: PRAVASTATIN
  13. WARFARIN [Concomitant]
     Active Substance: WARFARIN

REACTIONS (4)
  - Cardiac failure congestive [Recovered/Resolved]
  - Acute kidney injury [Recovered/Resolved]
  - Hyperkalaemia [Recovered/Resolved]
  - Condition aggravated [Recovered/Resolved]

NARRATIVE: CASE EVENT DATE: 20151023
